FAERS Safety Report 4545333-3 (Version None)
Quarter: 2005Q1

REPORT INFORMATION
  Report Type: 
  Country: None (occurrence: None)
  Receive Date: 20050103
  Receipt Date: 20041222
  Transmission Date: 20050727
  Serious: Yes (Life-Threatening)
  Sender: FDA-Public Use
  Company Number: 2004243359JP

PATIENT
  Age: 71 Year
  Sex: Male
  Weight: 49.6 kg

DRUGS (7)
  1. CABASER (CARBERGOLINE) [Suspect]
     Indication: PARKINSON'S DISEASE
     Dosage: 0.5 MG (0.5 MG), ORAL
     Route: 048
     Dates: start: 20040922, end: 20040927
  2. RISPERDAL [Suspect]
     Indication: BIPOLAR I DISORDER
     Dosage: ORAL
     Route: 048
     Dates: start: 20040713, end: 20040915
  3. ZOTEPINE (ZOTEPINE) [Suspect]
     Indication: BIPOLAR I DISORDER
     Dosage: ORAL
     Route: 048
     Dates: start: 20030905, end: 20040901
  4. LEVOMEPROMAZINE MALEATE (LEVOMEPROMAZINE MALEATE) [Suspect]
     Indication: BIPOLAR I DISORDER
     Dosage: 50 MG ( 50 MG), ORAL
     Route: 048
     Dates: start: 19971229, end: 20040915
  5. PERGOLIDE MESYLATE [Suspect]
     Indication: PARKINSON'S DISEASE
     Dosage: (500 MCG), ORAL
     Route: 048
     Dates: start: 20020101
  6. VALPROATE SODIUM (VALPORATE SODIUM) [Concomitant]
  7. LITHIUM CARBONATE [Concomitant]

REACTIONS (1)
  - NEUROLEPTIC MALIGNANT SYNDROME [None]
